FAERS Safety Report 15288688 (Version 1)
Quarter: 2018Q3

REPORT INFORMATION
  Report Type: Spontaneous
  Country: DE (occurrence: DE)
  Receive Date: 20180817
  Receipt Date: 20180817
  Transmission Date: 20181010
  Serious: Yes (Death, Hospitalization)
  Sender: FDA-Public Use
  Company Number: DE-SCIEGEN PHARMACEUTICALS INC-2018SCILIT00550

PATIENT

DRUGS (7)
  1. MIRTAZAPINE. [Interacting]
     Active Substance: MIRTAZAPINE
     Indication: SLEEP DISORDER
     Dosage: UNK
     Route: 065
  2. QUETIAPINE. [Interacting]
     Active Substance: QUETIAPINE
     Dosage: 300 MG, UNK
     Route: 065
  3. QUETIAPINE. [Suspect]
     Active Substance: QUETIAPINE
     Indication: AGITATION
     Dosage: UNK
     Route: 065
  4. SINUPRET FORTE [Interacting]
     Active Substance: HERBALS
     Indication: PRODUCT USED FOR UNKNOWN INDICATION
     Dosage: UNK
     Route: 065
  5. MIRTAZAPINE. [Interacting]
     Active Substance: MIRTAZAPINE
     Dosage: 30 MG, UNK
     Route: 065
  6. IBUPROFEN. [Interacting]
     Active Substance: IBUPROFEN
     Indication: PRODUCT USED FOR UNKNOWN INDICATION
     Dosage: 400 MG, UNK
     Route: 065
  7. QUETIAPINE. [Interacting]
     Active Substance: QUETIAPINE
     Indication: TENSION
     Dosage: 200 MG, UNK
     Route: 065

REACTIONS (10)
  - Respiratory failure [Fatal]
  - Suicidal ideation [Unknown]
  - Hypoxia [Unknown]
  - Drug interaction [Unknown]
  - Overdose [Unknown]
  - Epilepsy [Unknown]
  - Loss of consciousness [Recovering/Resolving]
  - Suicide attempt [Unknown]
  - Hypotension [Unknown]
  - Product use in unapproved indication [None]
